FAERS Safety Report 4817774-8 (Version None)
Quarter: 2005Q3

REPORT INFORMATION
  Report Type: 
  Country: None (occurrence: None)
  Receive Date: 20050929
  Receipt Date: 20050810
  Transmission Date: 20060218
  Serious: No
  Sender: FDA-Public Use
  Company Number: 05P-163-0308025-00

PATIENT
  Age: 54 Year
  Sex: Female
  Weight: 83.9154 kg

DRUGS (10)
  1. HUMIRA [Suspect]
     Indication: RHEUMATOID ARTHRITIS
     Dosage: 40 MG, 1 IN 2 WK, SUBCUTANEOUS
     Route: 058
     Dates: start: 20050501, end: 20050810
  2. METHOTREXATE SODIUM [Concomitant]
  3. NAPROXEN [Concomitant]
  4. PREDNISONE [Concomitant]
  5. ESTROGENS CONJUGATED [Concomitant]
  6. FOLIC ACID [Concomitant]
  7. HYDROCHLOROTHIAZIDE [Concomitant]
  8. ATENOLOL [Concomitant]
  9. LISINOPRIL [Concomitant]
  10. RANITIDINE HYDROCHLORIDE [Concomitant]

REACTIONS (3)
  - BLOOD PRESSURE INCREASED [None]
  - SCRATCH [None]
  - ULCER [None]
